FAERS Safety Report 6127325-6 (Version None)
Quarter: 2009Q1

REPORT INFORMATION
  Report Type: 
  Country: None (occurrence: None)
  Receive Date: 20090319
  Receipt Date: 20090309
  Transmission Date: 20090719
  Serious: Yes (Hospitalization, Other)
  Sender: FDA-Public Use
  Company Number: 2009SP004600

PATIENT
  Age: 24 Year
  Sex: Female

DRUGS (2)
  1. PEG-INTRON [Suspect]
     Indication: HEPATITIS C
     Dosage: SC
     Route: 058
     Dates: start: 20081114
  2. REBETOL [Suspect]
     Indication: HEPATITIS C
     Dosage: PO
     Route: 048
     Dates: start: 20081114

REACTIONS (5)
  - BACK PAIN [None]
  - BILE DUCT OBSTRUCTION [None]
  - CHEST PAIN [None]
  - KIDNEY INFECTION [None]
  - RENAL DISORDER [None]
